FAERS Safety Report 7628895-9 (Version None)
Quarter: 2011Q3

REPORT INFORMATION
  Report Type: 
  Country: None (occurrence: None)
  Receive Date: 20110722
  Receipt Date: 20110711
  Transmission Date: 20111222
  Serious: Yes (Other)
  Sender: FDA-Public Use
  Company Number: CA-UCBSA-036999

PATIENT
  Sex: Female
  Weight: 75.7 kg

DRUGS (10)
  1. CIMZIA [Suspect]
     Indication: RHEUMATOID ARTHRITIS
     Dosage: PREVIOUS DOSE: 400 MILLIGRAMS (WEEKS 0-2-4 THEN Q4 WEEKS)
     Route: 058
     Dates: start: 20110602
  2. VITAMIN B-12 [Concomitant]
  3. ETTERDRONE ASEDISODIUM [Concomitant]
  4. VITAMIN D [Concomitant]
  5. EPIPEN [Concomitant]
     Dosage: ONE PEN
  6. PREDNISONE [Concomitant]
     Indication: RHEUMATOID ARTHRITIS
     Route: 048
  7. VENTOLIN HFA [Concomitant]
     Dosage: Q4-6H
     Route: 055
  8. ADVAIR DISKUS 100/50 [Concomitant]
     Route: 055
  9. NOVO RABEPRAZOLE [Concomitant]
  10. CETIRIZINE HCL [Concomitant]
     Route: 048

REACTIONS (1)
  - PNEUMONIA [None]
